FAERS Safety Report 12453842 (Version 2)
Quarter: 2016Q2

REPORT INFORMATION
  Report Type: Spontaneous
  Country: US (occurrence: US)
  Receive Date: 20160609
  Receipt Date: 20160615
  Transmission Date: 20160815
  Serious: No
  Sender: FDA-Public Use
  Company Number: US-AMGEN-USASP2016072888

PATIENT
  Age: 51 Year
  Sex: Female

DRUGS (1)
  1. ENBREL [Suspect]
     Active Substance: ETANERCEPT
     Indication: ANKYLOSING SPONDYLITIS
     Dosage: 50 MG, QWK
     Route: 058
     Dates: start: 20160527

REACTIONS (7)
  - Injection site reaction [Unknown]
  - Migraine [Recovered/Resolved]
  - Injection site erythema [Not Recovered/Not Resolved]
  - Injection site pruritus [Recovering/Resolving]
  - Injection site swelling [Not Recovered/Not Resolved]
  - Injection site warmth [Unknown]
  - Injection site discolouration [Unknown]

NARRATIVE: CASE EVENT DATE: 2016
